FAERS Safety Report 7116050-0 (Version None)
Quarter: 2010Q4

REPORT INFORMATION
  Report Type: 
  Country: None (occurrence: None)
  Receive Date: 20101122
  Receipt Date: 20101110
  Transmission Date: 20110411
  Serious: Yes (Hospitalization)
  Sender: FDA-Public Use
  Company Number: DE-ROCHE-737061

PATIENT
  Sex: Female
  Weight: 59 kg

DRUGS (13)
  1. TOCILIZUMAB [Suspect]
     Indication: RHEUMATOID ARTHRITIS
     Route: 042
     Dates: start: 20100901
  2. LEFLUNOMIDE [Concomitant]
     Indication: RHEUMATOID ARTHRITIS
     Dates: start: 20080101
  3. PREDNISOLONE [Concomitant]
     Indication: RHEUMATOID ARTHRITIS
  4. RESTEX [Concomitant]
  5. FOSAVANCE [Concomitant]
     Dosage: 1 DOSE FORM: 70 MG ALENDRONIC ACID PLUS 70 UG COLECALCIFEROL
  6. DICLOFENAC SODIUM [Concomitant]
  7. NOVALGIN [Concomitant]
  8. PANTOPRAZOLE SODIUM [Concomitant]
  9. TORASEMID [Concomitant]
  10. ENALAPRIL [Concomitant]
  11. SIFROL [Concomitant]
  12. PREGABALIN [Concomitant]
  13. FERROUS SULFATE TAB [Concomitant]

REACTIONS (1)
  - RHEUMATOID NODULE [None]
